FAERS Safety Report 9162441 (Version 1)
Quarter: 2013Q1

REPORT INFORMATION
  Report Type: Spontaneous
  Country: US (occurrence: None)
  Receive Date: 20130227
  Receipt Date: 20130227
  Transmission Date: 20140127
  Serious: Yes (Other)
  Sender: FDA-Public Use
  Company Number: FK201300588

PATIENT
  Age: 51 Year
  Sex: Male

DRUGS (5)
  1. CYTARABINE [Suspect]
     Indication: ACUTE MYELOID LEUKAEMIA
  2. CYTARABINE [Suspect]
     Indication: ACUTE MYELOID LEUKAEMIA
  3. CYTARABINE [Suspect]
     Indication: ACUTE MYELOID LEUKAEMIA
  4. ETOPOSIDE [Suspect]
  5. DAUNORUBICIN [Suspect]

REACTIONS (2)
  - Hyperkeratosis [None]
  - Acanthosis [None]
